FAERS Safety Report 11138386 (Version 2)
Quarter: 2015Q2

REPORT INFORMATION
  Report Type: Spontaneous
  Country: FR (occurrence: FR)
  Receive Date: 20150526
  Receipt Date: 20150526
  Transmission Date: 20150821
  Serious: Yes (Death)
  Sender: FDA-Public Use
  Company Number: FR-ROCHE-1579855

PATIENT
  Age: 61 Year
  Sex: Male
  Weight: 90 kg

DRUGS (14)
  1. ZYDELIG [Suspect]
     Active Substance: IDELALISIB
     Indication: B-CELL LYMPHOMA
     Route: 048
     Dates: start: 20141217, end: 20150326
  2. IMOVANE [Concomitant]
     Active Substance: ZOPICLONE
     Route: 065
  3. CORTANCYL [Suspect]
     Active Substance: PREDNISONE
     Indication: B-CELL LYMPHOMA
     Route: 048
     Dates: start: 20141208, end: 20150326
  4. VALACICLOVIR [Concomitant]
     Active Substance: VALACYCLOVIR HYDROCHLORIDE
  5. ZYLORIC 300 [Concomitant]
     Route: 065
  6. SPASFON (FRANCE) [Concomitant]
     Active Substance: PHLOROGLUCINOL
  7. BISOCE [Concomitant]
     Active Substance: BISOPROLOL
     Route: 065
  8. DAFALGAN [Concomitant]
     Active Substance: ACETAMINOPHEN
  9. MABTHERA [Suspect]
     Active Substance: RITUXIMAB
     Indication: B-CELL LYMPHOMA
     Route: 042
     Dates: start: 20141208, end: 20150311
  10. SERESTA [Concomitant]
     Active Substance: OXAZEPAM
     Route: 065
  11. COVERSYL [Concomitant]
     Active Substance: PERINDOPRIL
     Route: 065
  12. VERSATIS [Concomitant]
     Active Substance: LIDOCAINE
     Route: 065
  13. TEMERIT [Concomitant]
     Active Substance: NEBIVOLOL
     Route: 065
  14. LYRICA [Concomitant]
     Active Substance: PREGABALIN

REACTIONS (3)
  - Acute respiratory distress syndrome [Fatal]
  - Pneumocystis jirovecii pneumonia [Fatal]
  - Respiratory moniliasis [Fatal]

NARRATIVE: CASE EVENT DATE: 20150326
